FAERS Safety Report 10029099 (Version 2)
Quarter: 2014Q1

REPORT INFORMATION
  Report Type: Spontaneous
  Country: US (occurrence: US)
  Receive Date: 20140321
  Receipt Date: 20140331
  Transmission Date: 20141002
  Serious: No
  Sender: FDA-Public Use
  Company Number: US-PFIZER INC-2014080877

PATIENT
  Sex: Female

DRUGS (1)
  1. ELELYSO [Suspect]
     Dosage: UNK

REACTIONS (2)
  - Drug effect incomplete [Unknown]
  - Headache [Unknown]
